FAERS Safety Report 20558448 (Version 1)
Quarter: 2022Q1

REPORT INFORMATION
  Report Type: Spontaneous
  Country: RO (occurrence: RO)
  Receive Date: 20220307
  Receipt Date: 20220307
  Transmission Date: 20220423
  Serious: Yes (Hospitalization, Other)
  Sender: FDA-Public Use
  Company Number: RO-SA-2022SA065162

PATIENT
  Age: 70 Year
  Sex: Male

DRUGS (2)
  1. SULFASALAZINE [Suspect]
     Active Substance: SULFASALAZINE
     Indication: Rheumatoid arthritis
     Dosage: UNK
  2. LEFLUNOMIDE [Suspect]
     Active Substance: LEFLUNOMIDE
     Indication: Rheumatoid arthritis
     Dosage: UNK

REACTIONS (11)
  - Septic arthritis staphylococcal [Recovering/Resolving]
  - Purulent discharge [Recovering/Resolving]
  - Arthralgia [Recovering/Resolving]
  - Joint instability [Recovering/Resolving]
  - Joint range of motion decreased [Recovering/Resolving]
  - Joint swelling [Recovering/Resolving]
  - Erythema [Recovering/Resolving]
  - Tenderness [Recovering/Resolving]
  - Joint effusion [Recovering/Resolving]
  - Tenosynovitis [Recovering/Resolving]
  - Bone marrow oedema [Recovering/Resolving]

NARRATIVE: CASE EVENT DATE: 20180101
